FAERS Safety Report 5025039-7 (Version None)
Quarter: 2006Q2

REPORT INFORMATION
  Report Type: 
  Country: None (occurrence: None)
  Receive Date: 20060613
  Receipt Date: 20060315
  Transmission Date: 20061013
  Serious: Yes (Other)
  Sender: FDA-Public Use
  Company Number: PHBS2006JP04140

PATIENT
  Age: 52 Year
  Sex: Male

DRUGS (3)
  1. LAMISIL [Suspect]
     Indication: NAIL TINEA
     Dosage: 125 MG/D
     Route: 048
     Dates: start: 20051227, end: 20060227
  2. AMLODIN [Concomitant]
     Route: 048
  3. MEDEPOLIN [Concomitant]
     Route: 048

REACTIONS (6)
  - ANOREXIA [None]
  - BLOOD CREATINE PHOSPHOKINASE INCREASED [None]
  - MALAISE [None]
  - MYALGIA [None]
  - NAUSEA [None]
  - STOMACH DISCOMFORT [None]
